FAERS Safety Report 13262610 (Version 1)
Quarter: 2017Q1

REPORT INFORMATION
  Report Type: Spontaneous
  Country: US (occurrence: US)
  Receive Date: 20170223
  Receipt Date: 20170223
  Transmission Date: 20170428
  Serious: No
  Sender: FDA-Public Use
  Company Number: US-DRREDDYS-PRS/USA/16/0079561

PATIENT
  Sex: Female

DRUGS (1)
  1. SECTRAL [Suspect]
     Active Substance: ACEBUTOLOL HYDROCHLORIDE
     Indication: VENTRICULAR ARRHYTHMIA
     Route: 048

REACTIONS (1)
  - Expired product administered [Unknown]
